FAERS Safety Report 8639700 (Version 2)
Quarter: 2012Q4

REPORT INFORMATION
  Report Type: 
  Country: JP (occurrence: JP)
  Receive Date: 20120627
  Receipt Date: 20121102
  Transmission Date: 20130627
  Serious: Yes (Other)
  Sender: FDA-Public Use
  Company Number: JP-MERCK-1206USA04427

PATIENT
  Age: 62 Year
  Sex: Male

DRUGS (2)
  1. GLACTIV [Suspect]
     Indication: TYPE 2 DIABETES MELLITUS
     Dosage: 50 mg, qd
     Route: 048
     Dates: start: 20120228, end: 20120608
  2. KETAS [Suspect]
     Dosage: UNK
     Route: 048
     Dates: start: 2012, end: 20120608

REACTIONS (2)
  - Anaemia [Recovering/Resolving]
  - Dizziness [None]
